FAERS Safety Report 5626896-3 (Version None)
Quarter: 2008Q1

REPORT INFORMATION
  Report Type: 
  Country: None (occurrence: None)
  Receive Date: 20080212
  Receipt Date: 20080130
  Transmission Date: 20080703
  Serious: Yes (Hospitalization)
  Sender: FDA-Public Use
  Company Number: GXKR2008GB01292

PATIENT
  Age: 53 Year
  Sex: Female

DRUGS (1)
  1. CO-CODAMOL (NGX)(ACETAMINOPHEN (PARACETAMOL), CODEINE PHOSPHATE) UNKNO [Suspect]

REACTIONS (11)
  - BLISTER [None]
  - DEPRESSED LEVEL OF CONSCIOUSNESS [None]
  - DERMATITIS BULLOUS [None]
  - DRUG TOXICITY [None]
  - ERYTHEMA [None]
  - MECHANICAL VENTILATION [None]
  - MIOSIS [None]
  - RESPIRATION ABNORMAL [None]
  - RESPIRATORY FAILURE [None]
  - SELF-MEDICATION [None]
  - THERAPEUTIC AGENT TOXICITY [None]
